FAERS Safety Report 9286788 (Version 1)
Quarter: 2013Q2

REPORT INFORMATION
  Report Type: Spontaneous
  Country: US (occurrence: US)
  Receive Date: 20130513
  Receipt Date: 20130513
  Transmission Date: 20140414
  Serious: No
  Sender: FDA-Public Use
  Company Number: US-ASTRAZENECA-2013SE31320

PATIENT
  Age: 76 Year
  Sex: Female

DRUGS (4)
  1. SYMBICORT [Suspect]
     Dosage: 160 MCG 2 PUFFS BID
     Route: 055
     Dates: start: 201301
  2. ALBUTEROL NEBULIZER [Suspect]
     Route: 055
  3. SEREVENT [Concomitant]
  4. ADVAIR [Concomitant]

REACTIONS (4)
  - Increased upper airway secretion [Unknown]
  - Vision blurred [Unknown]
  - Drug dose omission [Unknown]
  - Off label use [Unknown]
